FAERS Safety Report 19233617 (Version 1)
Quarter: 2021Q2

REPORT INFORMATION
  Report Type: Spontaneous
  Country: US (occurrence: US)
  Receive Date: 20210507
  Receipt Date: 20210507
  Transmission Date: 20210717
  Serious: Yes (Hospitalization)
  Sender: FDA-Public Use
  Company Number: US-MYLANLABS-2021M1026400

PATIENT
  Age: 67 Year
  Sex: Female

DRUGS (5)
  1. CARBIDOPA/LEVODOPA [Suspect]
     Active Substance: CARBIDOPA\LEVODOPA
     Indication: PARKINSON^S DISEASE
     Dosage: FORMULATION: SUSTAINED RELEASE TABLETS...
     Route: 065
  2. ESCITALOPRAM [Concomitant]
     Active Substance: ESCITALOPRAM OXALATE
     Indication: PRODUCT USED FOR UNKNOWN INDICATION
     Dosage: 20 MILLIGRAM, QD
     Route: 065
  3. ROPINIROLE. [Concomitant]
     Active Substance: ROPINIROLE
     Indication: PARKINSON^S DISEASE
     Dosage: 5 MILLIGRAM, TID
     Route: 065
  4. CARBIDOPA/LEVODOPA [Suspect]
     Active Substance: CARBIDOPA\LEVODOPA
     Indication: PARKINSON^S DISEASE
     Dosage: 10?14 TABLETS OF LEVODOPA/CARBIDOPA 100/25 DAILY
     Route: 065
  5. QUETIAPINE. [Concomitant]
     Active Substance: QUETIAPINE
     Indication: PSYCHIATRIC SYMPTOM
     Dosage: EVERY EVENING
     Route: 065

REACTIONS (7)
  - Disturbance in social behaviour [Recovering/Resolving]
  - Overdose [Recovering/Resolving]
  - Drug abuse [Unknown]
  - Psychotic disorder [Recovering/Resolving]
  - Depression [Unknown]
  - Withdrawal syndrome [Unknown]
  - Drug dependence [Recovering/Resolving]
